FAERS Safety Report 7625253-8 (Version None)
Quarter: 2011Q3

REPORT INFORMATION
  Report Type: 
  Country: None (occurrence: None)
  Receive Date: 20110713
  Receipt Date: 20110701
  Transmission Date: 20111222
  Serious: Yes (Hospitalization)
  Sender: FDA-Public Use
  Company Number: MSTR-NO-1107S-0191

PATIENT
  Age: 73 Year
  Sex: Male

DRUGS (1)
  1. METASTRON [Suspect]
     Indication: METASTATIC PAIN
     Dosage: 102.8 MBQ, SINGLE DOSE, INTRAVENOUS
     Route: 042
     Dates: start: 20110616, end: 20110616

REACTIONS (1)
  - HYPERCALCAEMIA [None]
